FAERS Safety Report 4546635-7 (Version None)
Quarter: 2005Q1

REPORT INFORMATION
  Report Type: 
  Country: None (occurrence: None)
  Receive Date: 20050103
  Receipt Date: 20041215
  Transmission Date: 20050727
  Serious: Yes (Other)
  Sender: FDA-Public Use
  Company Number: DE_041214907

PATIENT
  Age: 66 Year
  Sex: Female
  Weight: 63 kg

DRUGS (1)
  1. YENTREVE (DULOXETINE HYDROCHLORIDE) [Suspect]
     Indication: STRESS INCONTINENCE
     Dosage: 40 MG/2 DAY
     Dates: start: 20041104, end: 20041106

REACTIONS (4)
  - APHASIA [None]
  - APHONIA [None]
  - DIZZINESS [None]
  - NAUSEA [None]
